FAERS Safety Report 10610047 (Version 1)
Quarter: 2014Q4

REPORT INFORMATION
  Report Type: Spontaneous
  Country: US (occurrence: US)
  Receive Date: 20141126
  Receipt Date: 20141126
  Transmission Date: 20150529
  Serious: No
  Sender: FDA-Public Use
  Company Number: US-SHIRE-US201407747

PATIENT
  Sex: Male
  Weight: 102.49 kg

DRUGS (5)
  1. VYVANSE [Suspect]
     Active Substance: LISDEXAMFETAMINE DIMESYLATE
     Dosage: 20 MG, 1X/DAY:QD (IN THE AFTERNOON)
     Route: 048
     Dates: start: 2012, end: 201409
  2. VYVANSE [Suspect]
     Active Substance: LISDEXAMFETAMINE DIMESYLATE
     Dosage: 50 MG, 1X/DAY:QD (WEEK DAYS ONLY, NOT ON WEEKENDS)
     Route: 048
     Dates: start: 201409
  3. VYVANSE [Suspect]
     Active Substance: LISDEXAMFETAMINE DIMESYLATE
     Dosage: 20 MG, 1X/DAY:QD (WEEK DAYS ONLY, NOT ON WEEKENDS)
     Route: 048
     Dates: start: 201409
  4. VYVANSE [Suspect]
     Active Substance: LISDEXAMFETAMINE DIMESYLATE
     Dosage: 20 MG, 1X/DAY:QD (SOMETIMES)
     Route: 048
     Dates: start: 201409, end: 201409
  5. VYVANSE [Suspect]
     Active Substance: LISDEXAMFETAMINE DIMESYLATE
     Indication: ATTENTION DEFICIT/HYPERACTIVITY DISORDER
     Dosage: 50 MG, 1X/DAY:QD (IN THE MORNING)
     Route: 048
     Dates: start: 2012, end: 201409

REACTIONS (5)
  - Incorrect dosage administered [Not Recovered/Not Resolved]
  - Inappropriate schedule of drug administration [Not Recovered/Not Resolved]
  - Unevaluable event [Not Recovered/Not Resolved]
  - Distractibility [Not Recovered/Not Resolved]
  - Drug dose omission [Not Recovered/Not Resolved]

NARRATIVE: CASE EVENT DATE: 2012
